FAERS Safety Report 12487640 (Version 1)
Quarter: 2016Q2

REPORT INFORMATION
  Report Type: Spontaneous
  Country: US (occurrence: US)
  Receive Date: 20160622
  Receipt Date: 20160622
  Transmission Date: 20160815
  Serious: Yes (Other)
  Sender: FDA-Public Use
  Company Number: US-SUN PHARMACEUTICAL INDUSTRIES LTD-2016US-118615

PATIENT
  Age: 59 Year
  Sex: Female

DRUGS (1)
  1. THIORIDAZINE [Suspect]
     Active Substance: THIORIDAZINE
     Indication: INTELLECTUAL DISABILITY
     Route: 065

REACTIONS (2)
  - Hypothermia [Unknown]
  - Urinary tract infection [Unknown]
